FAERS Safety Report 6399621-9 (Version None)
Quarter: 2009Q4

REPORT INFORMATION
  Report Type: 
  Country: None (occurrence: None)
  Receive Date: 20091014
  Receipt Date: 20070918
  Transmission Date: 20100525
  Serious: Yes (Death, Hospitalization, Other)
  Sender: FDA-Public Use
  Company Number: US-ASTRAZENECA-2007UW09272

PATIENT
  Age: 12258 Day
  Sex: Male
  Weight: 92.5 kg

DRUGS (30)
  1. SEROQUEL [Suspect]
     Indication: SCHIZOPHRENIA
     Route: 048
     Dates: start: 20021201, end: 20061203
  2. SEROQUEL [Suspect]
     Indication: DEPRESSION
     Route: 048
     Dates: start: 20021201, end: 20061203
  3. SEROQUEL [Suspect]
     Route: 048
     Dates: start: 20040201
  4. SEROQUEL [Suspect]
     Route: 048
     Dates: start: 20040201
  5. SEROQUEL [Suspect]
     Dosage: 50-400 MG
     Route: 048
  6. SEROQUEL [Suspect]
     Dosage: 50-400 MG
     Route: 048
  7. ABILIFY [Concomitant]
  8. CLOZARIL [Concomitant]
  9. HALDOL [Concomitant]
     Indication: PARANOIA
     Dosage: 10- 15 MG DAILY
     Dates: start: 20061018
  10. HALDOL [Concomitant]
     Indication: THINKING ABNORMAL
     Dosage: 10- 15 MG DAILY
     Dates: start: 20061018
  11. NAVANE [Concomitant]
  12. RISPERDAL [Concomitant]
  13. STELAZINE [Concomitant]
  14. ZYPREXA [Concomitant]
  15. TEGRETOL [Concomitant]
     Dosage: 600 MG DAILY
     Route: 048
     Dates: start: 20061018
  16. VISTARIL [Concomitant]
     Route: 048
     Dates: start: 20061018
  17. PROTONIX [Concomitant]
  18. KLONOPIN [Concomitant]
     Route: 048
     Dates: start: 20061018
  19. SYNTHROID [Concomitant]
  20. COGENTIN [Concomitant]
     Dates: start: 20061114
  21. DIOVAN HCT [Concomitant]
  22. BYETTA [Concomitant]
  23. MICARDIS [Concomitant]
  24. TALACEN [Concomitant]
  25. STADOL [Concomitant]
  26. PREVACID [Concomitant]
  27. TRAZODONE [Concomitant]
  28. LORTAB [Concomitant]
  29. NUBAIN [Concomitant]
  30. DOXEPIN HCL [Concomitant]
     Dates: start: 20040101

REACTIONS (17)
  - ABDOMINAL PAIN [None]
  - CHEST DISCOMFORT [None]
  - CHEST PAIN [None]
  - DIABETES MELLITUS [None]
  - DIABETIC COMA [None]
  - FACIAL PALSY [None]
  - HYPERTENSION [None]
  - HYPOTHYROIDISM [None]
  - INFECTION [None]
  - PEPTIC ULCER [None]
  - PERIUMBILICAL ABSCESS [None]
  - POLYSUBSTANCE DEPENDENCE [None]
  - PSYCHOTIC DISORDER [None]
  - SCHIZOAFFECTIVE DISORDER [None]
  - SCHIZOPHRENIA, PARANOID TYPE [None]
  - SINUSITIS [None]
  - TYPE 2 DIABETES MELLITUS [None]
